FAERS Safety Report 7943429-7 (Version None)
Quarter: 2011Q4

REPORT INFORMATION
  Report Type: 
  Country: None (occurrence: None)
  Receive Date: 20111128
  Receipt Date: 20111117
  Transmission Date: 20120403
  Serious: Yes (Other)
  Sender: FDA-Public Use
  Company Number: BE-BAXTER-2011BH036706

PATIENT
  Sex: Male

DRUGS (1)
  1. FEIBA [Suspect]
     Indication: PRODUCT USED FOR UNKNOWN INDICATION
     Route: 065

REACTIONS (4)
  - HAEMORRHAGE [None]
  - HAEMOGLOBIN DECREASED [None]
  - DRUG DOSE OMISSION [None]
  - DRUG INEFFECTIVE [None]
